FAERS Safety Report 25137383 (Version 1)
Quarter: 2025Q1

REPORT INFORMATION
  Report Type: Spontaneous
  Country: FR (occurrence: FR)
  Receive Date: 20250329
  Receipt Date: 20250329
  Transmission Date: 20250408
  Serious: Yes (Hospitalization, Other)
  Sender: ABBVIE
  Company Number: FR-ABBVIE-6202295

PATIENT
  Age: 64 Year
  Sex: Male

DRUGS (3)
  1. SILODOSIN [Suspect]
     Active Substance: SILODOSIN
     Indication: Product used for unknown indication
     Route: 065
  2. ASPIRIN [Suspect]
     Active Substance: ASPIRIN
     Indication: Product used for unknown indication
     Route: 065
  3. LEVOTHYROXINE [Suspect]
     Active Substance: LEVOTHYROXINE
     Indication: Product used for unknown indication
     Route: 065

REACTIONS (13)
  - Tinnitus [Unknown]
  - Stool analysis abnormal [Unknown]
  - Ischaemic cerebral infarction [Unknown]
  - Deafness unilateral [Unknown]
  - Deafness unilateral [Not Recovered/Not Resolved]
  - Musculoskeletal discomfort [Unknown]
  - Arthralgia [Unknown]
  - Headache [Unknown]
  - Giant cell arteritis [Unknown]
  - Vertigo [Unknown]
  - Dizziness [Recovered/Resolved]
  - Rheumatoid arthritis [Unknown]
  - Arthralgia [Recovered/Resolved]
